FAERS Safety Report 23633992 (Version 1)
Quarter: 2024Q1

REPORT INFORMATION
  Report Type: Spontaneous
  Country: US (occurrence: US)
  Receive Date: 20240314
  Receipt Date: 20240314
  Transmission Date: 20240409
  Serious: Yes (Hospitalization)
  Sender: FDA-Public Use
  Company Number: US-JNJFOC-20240309928

PATIENT
  Sex: Female

DRUGS (1)
  1. TALVEY [Suspect]
     Active Substance: TALQUETAMAB-TGVS
     Indication: Product used for unknown indication
     Route: 065

REACTIONS (18)
  - Hospitalisation [Unknown]
  - Immune system disorder [Unknown]
  - Pain [Unknown]
  - Fatigue [Unknown]
  - Influenza like illness [Unknown]
  - Back pain [Unknown]
  - Stomatitis [Unknown]
  - Dry mouth [Unknown]
  - Rash [Unknown]
  - Full blood count decreased [Unknown]
  - Epistaxis [Unknown]
  - Dysphagia [Unknown]
  - Dysstasia [Unknown]
  - Nausea [Unknown]
  - Ageusia [Unknown]
  - Nail growth abnormal [Unknown]
  - Onychoclasis [Unknown]
  - Onychoclasis [Unknown]
